FAERS Safety Report 4997861-4 (Version None)
Quarter: 2006Q2

REPORT INFORMATION
  Report Type: 
  Country: None (occurrence: None)
  Receive Date: 20060508
  Receipt Date: 20060501
  Transmission Date: 20061013
  Serious: Yes (Hospitalization)
  Sender: FDA-Public Use
  Company Number: S06-USA-00451-02

PATIENT
  Sex: Female

DRUGS (4)
  1. LEXAPRO [Suspect]
     Dosage: 30 MG QD TRANSPLACENTAL
     Route: 064
     Dates: start: 20050101, end: 20060101
  2. MAGNESIUM SULFATE [Suspect]
     Indication: PRE-ECLAMPSIA
     Dates: start: 20060101, end: 20060101
  3. HYDROXYZINE [Concomitant]
  4. ROCEPHIN [Concomitant]

REACTIONS (4)
  - DRUG EXPOSURE DURING PREGNANCY [None]
  - HYPOTONIA NEONATAL [None]
  - PREMATURE BABY [None]
  - RESUSCITATION [None]
